FAERS Safety Report 6926268-5 (Version None)
Quarter: 2010Q3

REPORT INFORMATION
  Report Type: 
  Country: None (occurrence: None)
  Receive Date: 20100811
  Receipt Date: 20100727
  Transmission Date: 20110219
  Serious: Yes (Death)
  Sender: FDA-Public Use
  Company Number: B0668902A

PATIENT
  Age: 39 Year
  Sex: Male

DRUGS (1)
  1. PROPRANOLOL HYDROCHLORIDE [Suspect]
     Dosage: INTRAVENOUS
     Route: 042

REACTIONS (6)
  - ANURIA [None]
  - CARDIO-RESPIRATORY ARREST [None]
  - CARDIOGENIC SHOCK [None]
  - COMA [None]
  - MULTI-ORGAN FAILURE [None]
  - SUPRAVENTRICULAR TACHYCARDIA [None]
